FAERS Safety Report 16509945 (Version 2)
Quarter: 2019Q4

REPORT INFORMATION
  Report Type: Spontaneous
  Country: US (occurrence: US)
  Receive Date: 20190702
  Receipt Date: 20191001
  Transmission Date: 20200122
  Serious: Yes (Hospitalization)
  Sender: FDA-Public Use
  Company Number: US-AMGEN-USASP2019102428

PATIENT
  Age: 30 Year
  Sex: Female

DRUGS (4)
  1. NEULASTA [Suspect]
     Active Substance: PEGFILGRASTIM
     Indication: IDIOPATHIC NEUTROPENIA
     Dosage: 6 MILLIGRAM, Q2WK
     Route: 058
     Dates: start: 201502
  2. FISH OIL [Concomitant]
     Active Substance: FISH OIL
     Indication: IGA NEPHROPATHY
     Dosage: 3 GRAM, QD
     Route: 048
     Dates: start: 2017
  3. NEUPOGEN [Suspect]
     Active Substance: FILGRASTIM
     Indication: IDIOPATHIC NEUTROPENIA
     Dosage: UNK
     Route: 065
     Dates: start: 201407, end: 2015
  4. CYMBALTA [Concomitant]
     Active Substance: DULOXETINE HYDROCHLORIDE
     Indication: DEPRESSION
     Dosage: 60 MILLIGRAM, QD (TOTAL 20MG IN AM AND 40MG IN PM, STOPPED THERAPY WHILE PREGNANT AND RESUMED AROUND
     Route: 048
     Dates: start: 20190302

REACTIONS (5)
  - Maternal exposure during breast feeding [Unknown]
  - Off label use [Unknown]
  - Maternal exposure during pregnancy [Recovered/Resolved]
  - Delivery [Recovered/Resolved]
  - Bone pain [Not Recovered/Not Resolved]

NARRATIVE: CASE EVENT DATE: 201407
